FAERS Safety Report 4528077-3 (Version None)
Quarter: 2004Q4

REPORT INFORMATION
  Report Type: 
  Country: None (occurrence: None)
  Receive Date: 20041124
  Receipt Date: 20040921
  Transmission Date: 20050328
  Serious: Yes (Hospitalization)
  Sender: FDA-Public Use
  Company Number: 2004066872

PATIENT
  Age: 57 Year
  Sex: Female
  Weight: 82.1011 kg

DRUGS (6)
  1. TIKOSYN [Suspect]
     Indication: ATRIAL FIBRILLATION
     Dosage: 250 MCG (125 MCG, 2 IN 1 D), ORAL
     Route: 048
     Dates: start: 20031001
  2. SPIRONOLACTONE [Concomitant]
  3. WARFARIN SODIUM [Concomitant]
  4. ASPIRIN [Concomitant]
  5. SOTALOL HYDROCHLORDE (SOTALOL HYDROCHLORIDE) [Concomitant]
  6. QUINIDINE (QUINIDINE) [Concomitant]

REACTIONS (1)
  - ATRIAL FIBRILLATION [None]
